FAERS Safety Report 6158286-1 (Version None)
Quarter: 2009Q2

REPORT INFORMATION
  Report Type: 
  Country: None (occurrence: None)
  Receive Date: 20090417
  Receipt Date: 20090414
  Transmission Date: 20091009
  Serious: Yes (Disabling)
  Sender: FDA-Public Use
  Company Number: JP-B.I. PHARMACEUTICALS,INC./RIDGEFIELD-2009-BP-04749NB

PATIENT
  Age: 83 Year
  Sex: Female

DRUGS (5)
  1. MICARDIS [Suspect]
     Indication: HYPERTENSION
     Route: 048
  2. ARTIST [Suspect]
     Dosage: 7.5MG
     Route: 048
  3. ATELEC [Concomitant]
     Dosage: 40MG
     Route: 048
  4. PARIET [Concomitant]
     Dosage: 30MG
     Route: 048
  5. BAKTAR [Concomitant]
     Dosage: 3G
     Route: 048

REACTIONS (2)
  - CARDIO-RESPIRATORY ARREST [None]
  - OVERDOSE [None]
